FAERS Safety Report 9099210 (Version 2)
Quarter: 2013Q1

REPORT INFORMATION
  Report Type: Report from Study
  Country: US (occurrence: US)
  Receive Date: 20130213
  Receipt Date: 20130314
  Transmission Date: 20140127
  Serious: Yes (Hospitalization)
  Sender: FDA-Public Use
  Company Number: US-ACTELION-A-US2013-79160

PATIENT
  Age: 45 Year
  Sex: Female

DRUGS (3)
  1. VELETRI [Suspect]
     Indication: PULMONARY ARTERIAL HYPERTENSION
     Dosage: 38.5 NG/KG, PER MIN
     Route: 042
     Dates: start: 20111221
  2. LETAIRIS [Concomitant]
  3. LASIX [Concomitant]

REACTIONS (3)
  - Pneumonia [Unknown]
  - Fall [Unknown]
  - Dyspnoea [Unknown]
